FAERS Safety Report 17895803 (Version 1)
Quarter: 2020Q2

REPORT INFORMATION
  Report Type: Spontaneous
  Country: US (occurrence: US)
  Receive Date: 20200615
  Receipt Date: 20200615
  Transmission Date: 20200714
  Serious: No
  Sender: FDA-Public Use
  Company Number: None

PATIENT
  Age: 84 Year
  Sex: Female
  Weight: 60.75 kg

DRUGS (7)
  1. PLAVIX [Concomitant]
     Active Substance: CLOPIDOGREL BISULFATE
  2. GLIMEPIRIDE. [Concomitant]
     Active Substance: GLIMEPIRIDE
  3. JANUVIA [Concomitant]
     Active Substance: SITAGLIPTIN PHOSPHATE
  4. ACETAMINOPHEN. [Concomitant]
     Active Substance: ACETAMINOPHEN
  5. ATORVASTATIN [Concomitant]
     Active Substance: ATORVASTATIN
  6. CYCLOBENZAPRINE 5MG [Suspect]
     Active Substance: CYCLOBENZAPRINE
     Indication: PAIN
     Dosage: ?          QUANTITY:1 TABLET(S);?
     Route: 048
  7. DONEPEZIL. [Concomitant]
     Active Substance: DONEPEZIL

REACTIONS (10)
  - Dizziness [None]
  - Wheezing [None]
  - Abdominal discomfort [None]
  - Confusional state [None]
  - Swollen tongue [None]
  - Hyperhidrosis [None]
  - Gait disturbance [None]
  - Speech disorder [None]
  - Dysphonia [None]
  - Myocardial infarction [None]

NARRATIVE: CASE EVENT DATE: 20200515
